FAERS Safety Report 8182953-1 (Version None)
Quarter: 2012Q1

REPORT INFORMATION
  Report Type: 
  Country: None (occurrence: None)
  Receive Date: 20120305
  Receipt Date: 20120127
  Transmission Date: 20120608
  Serious: No
  Sender: FDA-Public Use
  Company Number: US-BRISTOL-MYERS SQUIBB COMPANY-16371353

PATIENT
  Sex: Female

DRUGS (2)
  1. KOMBIGLYZE XR [Suspect]
     Dosage: 1TAB:2.5/1000 ONE TAB- SINCE OCT11 5/1000 ONE TAB
  2. GLIPIZIDE [Concomitant]

REACTIONS (1)
  - DRUG ADMINISTRATION ERROR [None]
